FAERS Safety Report 4827636-8 (Version None)
Quarter: 2005Q4

REPORT INFORMATION
  Report Type: 
  Country: None (occurrence: None)
  Receive Date: 20051110
  Receipt Date: 20051101
  Transmission Date: 20060501
  Serious: Yes (Hospitalization)
  Sender: FDA-Public Use
  Company Number: S05-NOR-03396-01

PATIENT
  Age: 25 Year
  Sex: Male

DRUGS (13)
  1. ESCITALOPRAM OXALATE [Suspect]
     Indication: DEPRESSION
     Dosage: 5 MG QD PO
     Route: 048
     Dates: start: 20050805, end: 20050817
  2. ESCITALOPRAM OXALATE [Suspect]
     Indication: DEPRESSION
     Dosage: 20 MG QD PO
     Route: 048
     Dates: start: 20050818, end: 20050825
  3. SOBRIL (OXAZEPAM) [Concomitant]
  4. VALLERGRAN (ALIMEMAZINE TARTRATE) (ALIMEMAZINE TARTRATE) [Concomitant]
  5. IMOVANE (ZOPICLONE) [Concomitant]
  6. FUROSEMIDE [Concomitant]
  7. DOCUSATE SODIUM [Concomitant]
  8. SENNOSIDES (SENNOSIDE A+B CALCIUM) [Concomitant]
  9. METOPROLOL [Concomitant]
  10. POTASSIUM CHLORIDE [Concomitant]
  11. IPRATROPIUM/SALBUTAMOL 20/120 MG (SALBUTAMOL W/IPRATROPIUM) [Concomitant]
  12. ACETAMINOPHEN (PARACETAMOL) (ACETAMINOPHEN) [Concomitant]
  13. SODIUM PHOSPHATE (SODIUM PHOSPHATE (32 P)) [Concomitant]

REACTIONS (1)
  - CONVULSION [None]
